FAERS Safety Report 11311020 (Version 1)
Quarter: 2015Q3

REPORT INFORMATION
  Report Type: Report from Study
  Country: NL (occurrence: NL)
  Receive Date: 20150727
  Receipt Date: 20150727
  Transmission Date: 20151125
  Serious: Yes (Other)
  Sender: FDA-Public Use
  Company Number: NL-AMGEN-NLDSL2015073121

PATIENT
  Age: 88 Year
  Sex: Male

DRUGS (1)
  1. ARANESP [Suspect]
     Active Substance: DARBEPOETIN ALFA
     Indication: PRODUCT USED FOR UNKNOWN INDICATION
     Dosage: 0.3 ML (500MCG/ML) QWK
     Route: 058

REACTIONS (1)
  - Erysipelas [Recovering/Resolving]

NARRATIVE: CASE EVENT DATE: 20150717
